FAERS Safety Report 17544386 (Version 1)
Quarter: 2020Q1

REPORT INFORMATION
  Report Type: Spontaneous
  Country: US (occurrence: US)
  Receive Date: 20200316
  Receipt Date: 20200316
  Transmission Date: 20200409
  Serious: Yes (Hospitalization, Other)
  Sender: FDA-Public Use
  Company Number: US-JNJFOC-20200307368

PATIENT
  Sex: Male

DRUGS (1)
  1. XARELTO [Suspect]
     Active Substance: RIVAROXABAN
     Indication: PRODUCT USED FOR UNKNOWN INDICATION
     Route: 048

REACTIONS (6)
  - Thrombectomy [Unknown]
  - Expired product administered [Unknown]
  - Renal failure [Unknown]
  - Sepsis [Recovered/Resolved]
  - Hospitalisation [Unknown]
  - Hiatus hernia, obstructive [Recovered/Resolved]
